FAERS Safety Report 6688256-6 (Version None)
Quarter: 2010Q2

REPORT INFORMATION
  Report Type: 
  Country: None (occurrence: None)
  Receive Date: 20100420
  Receipt Date: 20100415
  Transmission Date: 20101027
  Serious: Yes (Hospitalization)
  Sender: FDA-Public Use
  Company Number: JP-BAYER-201010237BYL

PATIENT
  Age: 79 Year
  Sex: Male
  Weight: 70 kg

DRUGS (8)
  1. NEXAVAR [Suspect]
     Indication: HEPATIC NEOPLASM MALIGNANT
     Dosage: TOTAL DAILY DOSE: 800 MG  UNIT DOSE: 200 MG
     Route: 048
     Dates: start: 20100112, end: 20100405
  2. DIOVAN [Concomitant]
     Indication: HYPERTENSION
     Dosage: UNIT DOSE: 80 MG
     Route: 048
  3. URSO 250 [Concomitant]
     Indication: HEPATIC CIRRHOSIS
     Dosage: UNIT DOSE: 100 MG
     Route: 048
  4. ALLOPURINOL [Concomitant]
     Indication: HYPERLIPIDAEMIA
     Dosage: UNIT DOSE: 100 MG
     Route: 048
  5. KAYWAN [Concomitant]
     Indication: HEPATIC CIRRHOSIS
     Dosage: UNIT DOSE: 5 MG
     Route: 048
  6. JUVELA N [Concomitant]
     Indication: HYPOVITAMINOSIS
     Dosage: UNIT DOSE: 100 MG
     Route: 048
  7. VITAMEDIN [Concomitant]
     Indication: HYPOVITAMINOSIS
     Dosage: UNIT DOSE: 25 MG
     Route: 048
  8. BIOFERMIN R [Concomitant]
     Indication: DIARRHOEA
     Route: 048

REACTIONS (3)
  - BLOOD ALBUMIN INCREASED [None]
  - HEPATIC FUNCTION ABNORMAL [None]
  - HYPERTENSION [None]
